FAERS Safety Report 16539307 (Version 2)
Quarter: 2020Q2

REPORT INFORMATION
  Report Type: Report from Study
  Country: ES (occurrence: ES)
  Receive Date: 20190708
  Receipt Date: 20200612
  Transmission Date: 20200713
  Serious: Yes (Hospitalization)
  Sender: FDA-Public Use
  Company Number: ES-ROCHE-2347634

PATIENT
  Age: 65 Year
  Weight: 52.2 kg

DRUGS (8)
  1. PERTUZUMAB. [Suspect]
     Active Substance: PERTUZUMAB
     Indication: HER2 POSITIVE BREAST CANCER
     Dosage: DATE OF LAST DOSE OF PERTUZUMAB PRIOR TO SAE ONSET ON 05/JUN/2019 ?ON DAY 1 OF THE FIRST TREATMENT C
     Route: 042
     Dates: start: 20180719
  2. METOCLOPRAMIDE. [Concomitant]
     Active Substance: METOCLOPRAMIDE
  3. LOPERAMIDE [Concomitant]
     Active Substance: LOPERAMIDE
  4. OMEPRAZOLE. [Concomitant]
     Active Substance: OMEPRAZOLE
  5. TRASTUZUMAB. [Suspect]
     Active Substance: TRASTUZUMAB
     Indication: HER2 POSITIVE BREAST CANCER
     Dosage: DATE OF LAST DOSE OF TRASTUZUMAB PRIOR TO SAE ONSET ON 05/JUN/2019
     Route: 058
     Dates: start: 20180719
  6. DOCETAXEL. [Suspect]
     Active Substance: DOCETAXEL
     Indication: HER2 POSITIVE BREAST CANCER
     Dosage: DATE OF LAST DOSE OF DOCETAXEL PRIOR TO SAE ONSET ON 05/JUN/2019
     Route: 042
     Dates: start: 20190220
  7. CARBOPLATIN. [Suspect]
     Active Substance: CARBOPLATIN
     Indication: HER2 POSITIVE BREAST CANCER
     Dosage: DATE OF LAST DOSE PRIOR TO SAE ONSET ON 05/JUN/12019
     Route: 042
     Dates: start: 20190220
  8. PARACETAMOL [Concomitant]
     Active Substance: ACETAMINOPHEN

REACTIONS (1)
  - Acute kidney injury [Recovered/Resolved]

NARRATIVE: CASE EVENT DATE: 20190614
